FAERS Safety Report 11446132 (Version 1)
Quarter: 2015Q3

REPORT INFORMATION
  Report Type: Spontaneous
  Country: US (occurrence: US)
  Receive Date: 20150831
  Receipt Date: 20150831
  Transmission Date: 20151125
  Serious: No
  Sender: FDA-Public Use
  Company Number: US-ELI_LILLY_AND_COMPANY-US200810000073

PATIENT
  Age: 30 Year
  Sex: Male

DRUGS (2)
  1. CYMBALTA [Suspect]
     Active Substance: DULOXETINE HYDROCHLORIDE
     Dosage: 60 MG, UNK
     Dates: start: 200808
  2. MAXALT                                  /NET/ [Concomitant]
     Indication: HEADACHE
     Dosage: 20 MG, UNK
     Dates: start: 20080922, end: 20080929

REACTIONS (4)
  - Decreased activity [Unknown]
  - Nausea [Unknown]
  - Pain [Unknown]
  - Photophobia [Unknown]

NARRATIVE: CASE EVENT DATE: 20080929
